FAERS Safety Report 7126262-8 (Version None)
Quarter: 2010Q4

REPORT INFORMATION
  Report Type: 
  Country: None (occurrence: None)
  Receive Date: 20101129
  Receipt Date: 20101119
  Transmission Date: 20110411
  Serious: Yes (Hospitalization, Other)
  Sender: FDA-Public Use
  Company Number: US-ABBOTT-10P-163-0686700-00

PATIENT
  Sex: Female
  Weight: 99.88 kg

DRUGS (11)
  1. HUMIRA [Suspect]
     Indication: PSORIASIS
     Dates: start: 20000101, end: 20101001
  2. HUMIRA [Suspect]
     Indication: PRODUCT USED FOR UNKNOWN INDICATION
     Dates: start: 20101001
  3. LISINOPRIL [Concomitant]
     Indication: HYPERTENSION
     Dates: start: 20101101
  4. BONIVA [Concomitant]
     Indication: OSTEOPOROSIS
  5. MORPHINE [Concomitant]
     Indication: PAIN
     Route: 048
  6. NEXIUM [Concomitant]
     Indication: GASTRIC PH DECREASED
  7. FLOVENT [Concomitant]
     Indication: ASTHMA
  8. CYMBALTA [Concomitant]
     Indication: DEPRESSION
  9. DOXEPIN HCL [Concomitant]
     Indication: INSOMNIA
  10. LEVOTHYROXINE SODIUM [Concomitant]
     Indication: GOITRE
     Dates: start: 19950101
  11. UNKNOWN PAIN MEDICATION [Concomitant]
     Indication: PAIN

REACTIONS (3)
  - DIABETES MELLITUS [None]
  - FOOT FRACTURE [None]
  - PERIPHERAL EMBOLISM [None]
